FAERS Safety Report 4642103-2 (Version None)
Quarter: 2005Q2

REPORT INFORMATION
  Report Type: 
  Country: None (occurrence: None)
  Receive Date: 20050420
  Receipt Date: 20050406
  Transmission Date: 20051028
  Serious: Yes (Hospitalization, Disabling)
  Sender: FDA-Public Use
  Company Number: 2005CG00593

PATIENT
  Age: 54 Year
  Sex: Male
  Weight: 122 kg

DRUGS (6)
  1. ATACAND [Suspect]
     Indication: HYPERTENSION
     Dosage: 8 MG QD PO
     Route: 048
     Dates: start: 19990402, end: 20001102
  2. ATACAND [Suspect]
     Indication: HYPERTENSION
     Dosage: 16 MG QD PO
     Route: 048
     Dates: start: 20001103
  3. SOPROL [Suspect]
     Indication: HYPERTENSION
  4. FLUDEX [Suspect]
     Indication: HYPERTENSION
  5. GLUCOPHAGE [Suspect]
     Indication: DIABETES MELLITUS NON-INSULIN-DEPENDENT
     Dosage: 2000 MG QD PO
     Route: 048
  6. MEDIATOR [Concomitant]

REACTIONS (5)
  - LABORATORY TEST ABNORMAL [None]
  - MITRAL VALVE REPLACEMENT [None]
  - PEMPHIGOID [None]
  - SPINAL COMPRESSION FRACTURE [None]
  - SUBACUTE ENDOCARDITIS [None]
